FAERS Safety Report 9515045 (Version 1)
Quarter: 2013Q1

REPORT INFORMATION
  Report Type: Spontaneous
  Country: US (occurrence: None)
  Receive Date: 20130305
  Receipt Date: 20130305
  Transmission Date: 20140127
  Serious: Yes (Other)
  Sender: FDA-Public Use
  Company Number: 163-21880-12121875

PATIENT
  Age: 80 Year
  Sex: Male

DRUGS (10)
  1. REVLIMID [Suspect]
     Indication: PLASMA CELL MYELOMA
     Route: 048
     Dates: start: 20111205
  2. ASPIRIN (ACETYLSALICYLIC ACID) [Concomitant]
  3. CO Q-10 (UBIDECARENONE) [Concomitant]
  4. COREG (CARVEDILOL) [Concomitant]
  5. KLONOPIN (CLONAZEPAM) (TABLETS) [Concomitant]
  6. MACULAR VITAMIN (VITAMINS) [Concomitant]
  7. MULTIVITAMINS (MULTIVITAMINIS) [Concomitant]
  8. OMEPRAZOLE (OMEPRAZOLE) [Concomitant]
  9. SYNTHROID (LEVOTHYROXINE SODIUM) [Concomitant]
  10. TYLENOL PM (TYLENOL PM) [Concomitant]

REACTIONS (2)
  - Anaemia [None]
  - Protein total increased [None]
